FAERS Safety Report 4616612-6 (Version None)
Quarter: 2005Q1

REPORT INFORMATION
  Report Type: 
  Country: None (occurrence: None)
  Receive Date: 20050318
  Receipt Date: 20050304
  Transmission Date: 20050727
  Serious: Yes (Life-Threatening, Hospitalization, Other)
  Sender: FDA-Public Use
  Company Number: 0205004

PATIENT
  Age: 84 Year
  Sex: Female
  Weight: 87.0906 kg

DRUGS (6)
  1. DEPODUR [Suspect]
     Indication: PAIN MANAGEMENT
     Dosage: 10 MG (ONCE), EPIDURAL
     Route: 008
     Dates: start: 20050214, end: 20050214
  2. PROPOFOL [Concomitant]
  3. LIDOCAINE [Concomitant]
  4. FENTANYL [Concomitant]
  5. BUPIVACAINE [Concomitant]
  6. HEPARIN [Concomitant]

REACTIONS (5)
  - ANXIETY [None]
  - DEPRESSED LEVEL OF CONSCIOUSNESS [None]
  - RESPIRATORY ACIDOSIS [None]
  - RESPIRATORY DEPRESSION [None]
  - SOMNOLENCE [None]
